FAERS Safety Report 16000264 (Version 1)
Quarter: 2019Q1

REPORT INFORMATION
  Report Type: Spontaneous
  Country: US (occurrence: US)
  Receive Date: 20190223
  Receipt Date: 20190223
  Transmission Date: 20190418
  Serious: No
  Sender: FDA-Public Use
  Company Number: None

PATIENT

DRUGS (1)
  1. NEXPLANON [Suspect]
     Active Substance: ETONOGESTREL
     Dates: start: 20180608

REACTIONS (10)
  - Abnormal loss of weight [None]
  - Mood swings [None]
  - Bowel movement irregularity [None]
  - Fatigue [None]
  - Irritability [None]
  - Haemorrhage [None]
  - Blood luteinising hormone abnormal [None]
  - Skin disorder [None]
  - Weight gain poor [None]
  - Loss of libido [None]
